FAERS Safety Report 15794219 (Version 1)
Quarter: 2018Q4

REPORT INFORMATION
  Report Type: Spontaneous
  Country: US (occurrence: US)
  Receive Date: 20181213
  Receipt Date: 20181213
  Transmission Date: 20190205
  Serious: No
  Sender: FDA-Public Use
  Company Number: None

PATIENT
  Age: 29 Year
  Sex: Female

DRUGS (1)
  1. ZARXIO [Suspect]
     Active Substance: FILGRASTIM-SNDZ
     Dates: start: 20181211

REACTIONS (2)
  - Manufacturing product shipping issue [None]
  - Product packaging quantity issue [None]

NARRATIVE: CASE EVENT DATE: 20181212
